FAERS Safety Report 22628419 (Version 1)
Quarter: 2023Q2

REPORT INFORMATION
  Report Type: Spontaneous
  Country: US (occurrence: US)
  Receive Date: 20230622
  Receipt Date: 20230622
  Transmission Date: 20230722
  Serious: No
  Sender: FDA-Public Use
  Company Number: US-Covis Pharma GmbH-2023COV01348

PATIENT
  Sex: Female

DRUGS (3)
  1. RILUZOLE [Suspect]
     Active Substance: RILUZOLE
     Indication: Product used for unknown indication
     Route: 065
  2. RADICAVA [Suspect]
     Active Substance: EDARAVONE
     Indication: Amyotrophic lateral sclerosis
     Dosage: ONCE A DAY FOR 10 DAYS OUT OF 14 DAYS, FOLLOWED BY 14-DAY DRUG FREE PERIOD.
     Route: 048
     Dates: start: 202304
  3. RELYVRIO [Concomitant]
     Active Substance: SODIUM PHENYLBUTYRATE\TAURURSODIOL

REACTIONS (1)
  - Dizziness [Unknown]
